FAERS Safety Report 5218161-3 (Version None)
Quarter: 2007Q1

REPORT INFORMATION
  Report Type: 
  Country: None (occurrence: None)
  Receive Date: 20061130
  Receipt Date: 20060901
  Transmission Date: 20070707
  Serious: Yes (Hospitalization)
  Sender: FDA-Public Use
  Company Number: US200609001913

PATIENT
  Sex: Female
  Weight: 85.3 kg

DRUGS (1)
  1. ZYPREXA [Suspect]
     Indication: DRUG USE FOR UNKNOWN INDICATION
     Dosage: UNK, UNK, UNK

REACTIONS (3)
  - DIABETES MELLITUS [None]
  - OBESITY [None]
  - PANCREATITIS ACUTE [None]
